FAERS Safety Report 25909018 (Version 1)
Quarter: 2025Q4

REPORT INFORMATION
  Report Type: Spontaneous
  Country: US (occurrence: US)
  Receive Date: 20251011
  Receipt Date: 20251011
  Transmission Date: 20260117
  Serious: No
  Sender: AMNEAL
  Company Number: US-AMNEAL PHARMACEUTICALS-2025-AMRX-02843

PATIENT
  Sex: Female

DRUGS (3)
  1. LIDOCAINE [Suspect]
     Active Substance: LIDOCAINE
     Indication: Pain
     Dosage: 5%
     Route: 062
     Dates: start: 2025
  2. LIDOCAINE [Suspect]
     Active Substance: LIDOCAINE
     Dosage: 5%
     Route: 062
     Dates: start: 2025
  3. LIDOCAINE [Suspect]
     Active Substance: LIDOCAINE
     Dosage: 5%
     Route: 062

REACTIONS (2)
  - Product adhesion issue [Unknown]
  - No adverse event [Unknown]

NARRATIVE: CASE EVENT DATE: 20250101
